FAERS Safety Report 20782685 (Version 2)
Quarter: 2023Q1

REPORT INFORMATION
  Report Type: Spontaneous
  Country: US (occurrence: US)
  Receive Date: 20220504
  Receipt Date: 20230127
  Transmission Date: 20230417
  Serious: No
  Sender: FDA-Public Use
  Company Number: US-PFIZER INC-202200535469

PATIENT
  Age: 80 Year
  Sex: Female

DRUGS (18)
  1. AMLODIPINE BESYLATE [Suspect]
     Active Substance: AMLODIPINE BESYLATE
     Dosage: UNK
  2. BACITRACIN [Suspect]
     Active Substance: BACITRACIN
     Dosage: UNK
  3. CIPROFLOXACIN [Suspect]
     Active Substance: CIPROFLOXACIN
     Dosage: UNK
  4. CORTISONE [Suspect]
     Active Substance: CORTISONE
     Dosage: UNK
  5. GUAIFENESIN [Suspect]
     Active Substance: GUAIFENESIN
     Dosage: UNK
  6. NAPROXEN SODIUM [Suspect]
     Active Substance: NAPROXEN SODIUM
     Dosage: UNK
  7. NEOMYCIN SULFATE [Suspect]
     Active Substance: NEOMYCIN SULFATE
     Dosage: UNK
  8. POLYMYXIN B SULFATE [Suspect]
     Active Substance: POLYMYXIN B SULFATE
     Dosage: UNK
  9. TRIAMCINOLONE [Suspect]
     Active Substance: TRIAMCINOLONE
     Dosage: UNK
  10. LISINOPRIL [Suspect]
     Active Substance: LISINOPRIL
     Dosage: UNK
  11. HYDROCODONE [Suspect]
     Active Substance: HYDROCODONE
     Dosage: UNK
  12. FELODIPINE [Suspect]
     Active Substance: FELODIPINE
     Dosage: UNK
  13. CLARITHROMYCIN [Suspect]
     Active Substance: CLARITHROMYCIN
     Dosage: UNK
  14. CHLORPHENIRAMINE [Suspect]
     Active Substance: CHLORPHENIRAMINE
     Dosage: UNK
  15. LANSOPRAZOLE [Suspect]
     Active Substance: LANSOPRAZOLE
     Dosage: UNK
  16. LOSARTAN [Suspect]
     Active Substance: LOSARTAN
     Dosage: UNK
  17. OLMESARTAN MEDOXOMIL [Suspect]
     Active Substance: OLMESARTAN MEDOXOMIL
     Dosage: UNK
  18. TRIAMTERENE [Suspect]
     Active Substance: TRIAMTERENE
     Dosage: UNK

REACTIONS (1)
  - Drug hypersensitivity [Unknown]
